FAERS Safety Report 6133912-1 (Version None)
Quarter: 2009Q1

REPORT INFORMATION
  Report Type: 
  Country: None (occurrence: None)
  Receive Date: 20090326
  Receipt Date: 20090323
  Transmission Date: 20090719
  Serious: Yes (Life-Threatening, Other)
  Sender: FDA-Public Use
  Company Number: GB-ASTRAZENECA-2009GB00738

PATIENT
  Age: 44 Year
  Sex: Female
  Weight: 50 kg

DRUGS (14)
  1. MEROPENEM [Suspect]
     Indication: INFECTION
     Dosage: TEMPORARILY STOPPED AND RESTARTED ON UNSPECIFIED DATE
     Route: 042
     Dates: start: 20090209
  2. MEROPENEM [Suspect]
     Indication: BRAIN ABSCESS
     Dosage: TEMPORARILY STOPPED AND RESTARTED ON UNSPECIFIED DATE
     Route: 042
     Dates: start: 20090209
  3. MEROPENEM [Suspect]
     Indication: CENTRAL NERVOUS SYSTEM INFECTION
     Dosage: TEMPORARILY STOPPED AND RESTARTED ON UNSPECIFIED DATE
     Route: 042
     Dates: start: 20090209
  4. MEROPENEM [Suspect]
     Route: 042
     Dates: end: 20090309
  5. MEROPENEM [Suspect]
     Route: 042
     Dates: end: 20090309
  6. MEROPENEM [Suspect]
     Route: 042
     Dates: end: 20090309
  7. TEICOPLANIN [Suspect]
     Indication: INFECTION
     Dosage: TEMPORARILY STOPPED AND RESTARTED ON UNSPECIFIED DATE
     Route: 042
     Dates: start: 20090209
  8. TEICOPLANIN [Suspect]
     Route: 042
     Dates: end: 20090309
  9. AMPHOTERICIN B [Concomitant]
  10. FLUCONAZOLE [Concomitant]
  11. LEVETIRACETAM [Concomitant]
  12. LINEZOLID [Concomitant]
  13. PHENYTOIN [Concomitant]
  14. VANCOMYCIN [Concomitant]

REACTIONS (5)
  - EOSINOPHIL COUNT INCREASED [None]
  - LYMPHOCYTE COUNT ABNORMAL [None]
  - NEUTROPENIA [None]
  - RED BLOOD CELL COUNT DECREASED [None]
  - WHITE BLOOD CELL COUNT DECREASED [None]
